FAERS Safety Report 9209743 (Version 1)
Quarter: 2013Q2

REPORT INFORMATION
  Report Type: Spontaneous
  Country: US (occurrence: None)
  Receive Date: 20130403
  Receipt Date: 20130403
  Transmission Date: 20140414
  Serious: No
  Sender: FDA-Public Use
  Company Number: None

PATIENT
  Sex: 0

DRUGS (2)
  1. SYMBICORT [Suspect]
     Route: 048
  2. XOPENEX [Suspect]
     Route: 048

REACTIONS (4)
  - Oropharyngeal pain [None]
  - Throat irritation [None]
  - Sinusitis [None]
  - Eye disorder [None]
